FAERS Safety Report 24821078 (Version 3)
Quarter: 2025Q3

REPORT INFORMATION
  Report Type: Spontaneous
  Country: US (occurrence: US)
  Receive Date: 20250108
  Receipt Date: 20250805
  Transmission Date: 20251020
  Serious: Yes (Other)
  Sender: SANOFI AVENTIS
  Company Number: US-SANOFI-02359071

PATIENT
  Age: 76 Year
  Sex: Female

DRUGS (3)
  1. FLOMAX [Suspect]
     Active Substance: TAMSULOSIN HYDROCHLORIDE
     Indication: Product used for unknown indication
     Dates: start: 202412
  2. CARDURA [Suspect]
     Active Substance: DOXAZOSIN MESYLATE
     Dates: start: 202412, end: 202412
  3. ORENITRAM [Suspect]
     Active Substance: TREPROSTINIL
     Indication: Pulmonary arterial hypertension
     Dosage: 0.125 MG, TID
     Route: 048
     Dates: start: 20250612

REACTIONS (11)
  - Carotid arteriosclerosis [Unknown]
  - Blood pressure decreased [Recovered/Resolved]
  - Feeling abnormal [Unknown]
  - Blood pressure abnormal [Unknown]
  - Malaise [Unknown]
  - Fatigue [Unknown]
  - Peripheral swelling [Unknown]
  - Dizziness [Recovered/Resolved]
  - Headache [Unknown]
  - Off label use [Unknown]
  - Inappropriate schedule of product administration [Unknown]

NARRATIVE: CASE EVENT DATE: 20241201
